FAERS Safety Report 9353812 (Version 1)
Quarter: 2013Q2

REPORT INFORMATION
  Report Type: Spontaneous
  Country: IT (occurrence: IT)
  Receive Date: 20130618
  Receipt Date: 20130618
  Transmission Date: 20140414
  Serious: Yes (Hospitalization)
  Sender: FDA-Public Use
  Company Number: IT-BAYER-2013-074629

PATIENT
  Age: 43 Year
  Sex: Female

DRUGS (3)
  1. NEXAVAR [Suspect]
     Indication: HEPATIC CANCER
     Dosage: UNK
     Dates: start: 20121101, end: 20121231
  2. RAMIPRIL [Concomitant]
     Dosage: 5 MG, QD
  3. CORTONE AZETAT [Concomitant]
     Dosage: UNK
     Route: 048
     Dates: end: 201212

REACTIONS (2)
  - Adverse drug reaction [Recovering/Resolving]
  - Palmar-plantar erythrodysaesthesia syndrome [Recovering/Resolving]
